FAERS Safety Report 15904873 (Version 12)
Quarter: 2020Q4

REPORT INFORMATION
  Report Type: Report from Study
  Country: US (occurrence: US)
  Receive Date: 20190204
  Receipt Date: 20201210
  Transmission Date: 20210113
  Serious: Yes (Disabling, Other)
  Sender: FDA-Public Use
  Company Number: US-SA-2019SA028438

PATIENT

DRUGS (1)
  1. ALEMTUZUMAB [Suspect]
     Active Substance: ALEMTUZUMAB
     Indication: MULTIPLE SCLEROSIS
     Dosage: 12 MG, QD
     Route: 041
     Dates: start: 20190121, end: 20190125

REACTIONS (29)
  - Haemoglobin decreased [Recovered/Resolved]
  - Musculoskeletal disorder [Unknown]
  - Fall [Unknown]
  - Neck pain [Recovered/Resolved]
  - Immunodeficiency [Unknown]
  - Limb discomfort [Recovered/Resolved]
  - Multiple sclerosis relapse [Recovered/Resolved]
  - Lymphadenopathy [Not Recovered/Not Resolved]
  - Barrett^s oesophagus [Unknown]
  - Asthenia [Unknown]
  - Back pain [Recovered/Resolved]
  - White blood cell count abnormal [Unknown]
  - Cardiac flutter [Unknown]
  - Dysarthria [Unknown]
  - Cold sweat [Unknown]
  - Helicobacter infection [Unknown]
  - Fatigue [Unknown]
  - Vision blurred [Recovered/Resolved]
  - Condition aggravated [Unknown]
  - Blood thyroid stimulating hormone decreased [Unknown]
  - Blood loss anaemia [Unknown]
  - Gait disturbance [Recovered/Resolved]
  - Memory impairment [Unknown]
  - Asthenia [Recovered/Resolved]
  - Pruritus [Not Recovered/Not Resolved]
  - Malabsorption [Not Recovered/Not Resolved]
  - Haematocrit abnormal [Recovered/Resolved]
  - Bone contusion [Unknown]
  - Full blood count decreased [Unknown]

NARRATIVE: CASE EVENT DATE: 20190121
